FAERS Safety Report 6015057-4 (Version None)
Quarter: 2008Q4

REPORT INFORMATION
  Report Type: 
  Country: None (occurrence: None)
  Receive Date: 20081218
  Receipt Date: 20081204
  Transmission Date: 20090506
  Serious: Yes (Other)
  Sender: FDA-Public Use
  Company Number: 2008EN000181

PATIENT
  Age: 17 Year
  Sex: Female

DRUGS (4)
  1. ABELCET [Suspect]
     Indication: ASPERGILLOSIS
     Dosage: 200 MG; QD; IV
     Route: 042
     Dates: start: 20081027, end: 20081027
  2. ACYCLOVIR [Concomitant]
  3. MEROPENEM [Concomitant]
  4. TEICOPLANIN [Concomitant]

REACTIONS (4)
  - CHILLS [None]
  - PERIPHERAL COLDNESS [None]
  - PYREXIA [None]
  - TACHYCARDIA [None]
